FAERS Safety Report 7913704-0 (Version None)
Quarter: 2011Q4

REPORT INFORMATION
  Report Type: 
  Country: None (occurrence: None)
  Receive Date: 20111110
  Receipt Date: 20111031
  Transmission Date: 20120403
  Serious: Yes (Hospitalization)
  Sender: FDA-Public Use
  Company Number: KR-JNJFOC-20111006796

PATIENT
  Age: 38 Year
  Sex: Female
  Weight: 62 kg

DRUGS (8)
  1. ACETAMINOPHEN [Concomitant]
  2. GASTROINTESTINAL DISORDER THERAPY [Concomitant]
  3. DACOGEN [Suspect]
     Indication: MYELODYSPLASTIC SYNDROME
     Dosage: 20 MG/M2, IN 1 DAY, INTRAVENOUS
     Route: 042
     Dates: start: 20110801, end: 20110802
  4. DACOGEN [Suspect]
     Indication: MYELODYSPLASTIC SYNDROME
     Dosage: 20 MG/M2, IN 1 DAY, INTRAVENOUS
     Route: 042
     Dates: start: 20110926, end: 20110930
  5. DACOGEN [Suspect]
     Indication: MYELODYSPLASTIC SYNDROME
     Dosage: 20 MG/M2, IN 1 DAY, INTRAVENOUS
     Route: 042
     Dates: start: 20110728, end: 20110730
  6. DACOGEN [Suspect]
     Indication: MYELODYSPLASTIC SYNDROME
     Dosage: 20 MG/M2, IN 1 DAY, INTRAVENOUS
     Route: 042
     Dates: start: 20110829, end: 20110902
  7. POVIDONE IODINE [Concomitant]
  8. CHLORHEXIDINE GLUCONATE [Concomitant]

REACTIONS (6)
  - NEUTROPHIL COUNT DECREASED [None]
  - BLOOD PRESSURE INADEQUATELY CONTROLLED [None]
  - ABDOMINAL PAIN [None]
  - COLITIS [None]
  - BACTERIAL TEST POSITIVE [None]
  - SHOCK [None]
